FAERS Safety Report 13676926 (Version 1)
Quarter: 2017Q2

REPORT INFORMATION
  Report Type: Spontaneous
  Country: US (occurrence: US)
  Receive Date: 20170622
  Receipt Date: 20170622
  Transmission Date: 20170830
  Serious: No
  Sender: FDA-Public Use
  Company Number: US-BAYER-2017-119393

PATIENT
  Age: 78 Year
  Sex: Male
  Weight: 57.96 kg

DRUGS (2)
  1. MIRALAX [Suspect]
     Active Substance: POLYETHYLENE GLYCOL 3350
     Indication: GASTROINTESTINAL DISORDER
     Dosage: UNK
     Dates: start: 20161006
  2. MIRALAX [Suspect]
     Active Substance: POLYETHYLENE GLYCOL 3350
     Indication: GASTROINTESTINAL DISORDER
     Dosage: 1 DF, QD
     Route: 048
     Dates: start: 201502, end: 20170620

REACTIONS (10)
  - Frequent bowel movements [Unknown]
  - Flatulence [Unknown]
  - Faeces hard [Unknown]
  - Product use in unapproved indication [Unknown]
  - Defaecation urgency [Unknown]
  - Incorrect drug administration duration [Unknown]
  - Diarrhoea [Unknown]
  - Underdose [Unknown]
  - Expired product administered [Unknown]
  - Inappropriate prescribing [Unknown]

NARRATIVE: CASE EVENT DATE: 201502
